FAERS Safety Report 8998899 (Version 1)
Quarter: 2013Q1

REPORT INFORMATION
  Report Type: Spontaneous
  Country: US (occurrence: US)
  Receive Date: 20130103
  Receipt Date: 20130103
  Transmission Date: 20140127
  Serious: Yes (Disabling, Other)
  Sender: FDA-Public Use
  Company Number: US-SANOFI-AVENTIS-2012SA095173

PATIENT
  Age: 61 Year
  Sex: Female

DRUGS (2)
  1. LANTUS [Suspect]
     Dosage: 6 UNITS IN THE AM AND 10 UNITS IN THE EVENING
     Route: 058
     Dates: start: 2009
  2. NOVOLOG [Suspect]
     Route: 065

REACTIONS (2)
  - Leg amputation [Recovering/Resolving]
  - Diabetic foot [Unknown]
